FAERS Safety Report 10302243 (Version 2)
Quarter: 2014Q3

REPORT INFORMATION
  Report Type: Report from Study
  Country: US (occurrence: US)
  Receive Date: 20140714
  Receipt Date: 20140714
  Transmission Date: 20150326
  Serious: Yes (Other)
  Sender: FDA-Public Use
  Company Number: US-SANOFI-AVENTIS-2013SA045882

PATIENT
  Age: 61 Year
  Sex: Male
  Weight: 83 kg

DRUGS (1)
  1. AUBAGIO [Suspect]
     Active Substance: TERIFLUNOMIDE
     Indication: MULTIPLE SCLEROSIS
     Route: 048
     Dates: start: 20130402

REACTIONS (5)
  - Adverse event [Unknown]
  - Hemiparesis [Not Recovered/Not Resolved]
  - Peroneal nerve palsy [Unknown]
  - Alopecia [Recovered/Resolved]
  - Paraesthesia [Unknown]
